FAERS Safety Report 5558368-9 (Version None)
Quarter: 2007Q4

REPORT INFORMATION
  Report Type: 
  Country: None (occurrence: None)
  Receive Date: 20071214
  Receipt Date: 20071204
  Transmission Date: 20080405
  Serious: Yes (Other)
  Sender: FDA-Public Use
  Company Number: US-PFIZER INC-2007102094

PATIENT
  Sex: Male

DRUGS (5)
  1. DILANTIN [Suspect]
     Indication: CONVULSION
  2. PHENYTOIN [Suspect]
     Indication: CONVULSION
  3. PHENOBARBITAL TAB [Suspect]
     Indication: CONVULSION
  4. CALTRATE + D [Suspect]
     Indication: BONE DENSITY DECREASED
     Dosage: TEXT:UNIT DOSE 600/400
  5. ASTHMA-SPRAY [Concomitant]

REACTIONS (9)
  - ANTICONVULSANT DRUG LEVEL THERAPEUTIC [None]
  - BONE DENSITY DECREASED [None]
  - CONVULSION [None]
  - DRUG DOSE OMISSION [None]
  - DRUG LEVEL DECREASED [None]
  - FEELING ABNORMAL [None]
  - FEELING JITTERY [None]
  - INSOMNIA [None]
  - PHARMACEUTICAL PRODUCT COMPLAINT [None]
